FAERS Safety Report 9333298 (Version 2)
Quarter: 2014Q1

REPORT INFORMATION
  Report Type: Spontaneous
  Country: BR (occurrence: BR)
  Receive Date: 20130606
  Receipt Date: 20140204
  Transmission Date: 20141002
  Serious: Yes (Hospitalization)
  Sender: FDA-Public Use
  Company Number: PHHY2013BR056400

PATIENT
  Age: 8 Month
  Sex: Male

DRUGS (2)
  1. SANDOSTATIN [Suspect]
     Indication: DRUG ADMINISTERED TO PATIENT OF INAPPROPRIATE AGE
     Dosage: 0.2 MG, QD
  2. SANDOSTATIN [Suspect]
     Indication: OFF LABEL USE
     Dosage: 0.1 MG, 3 TABLETS DAILY, APPROXIMATELY 6 MONTHS
     Route: 048

REACTIONS (3)
  - Hyperinsulinaemia [Unknown]
  - Hypoglycaemia [Unknown]
  - Incorrect route of drug administration [Unknown]
